FAERS Safety Report 4406600-7 (Version None)
Quarter: 2004Q3

REPORT INFORMATION
  Report Type: 
  Country: None (occurrence: None)
  Receive Date: 20040723
  Receipt Date: 20040712
  Transmission Date: 20050211
  Serious: Yes (Other)
  Sender: FDA-Public Use
  Company Number: LB-GLAXOSMITHKLINE-B0339233A

PATIENT
  Age: 22 Year
  Sex: Female
  Weight: 58 kg

DRUGS (1)
  1. LAMICTAL [Suspect]
     Indication: EPILEPSY
     Dosage: 200MG PER DAY
     Route: 048
     Dates: start: 20030901

REACTIONS (1)
  - ABORTION SPONTANEOUS [None]
